FAERS Safety Report 8190981-5 (Version None)
Quarter: 2012Q1

REPORT INFORMATION
  Report Type: 
  Country: None (occurrence: None)
  Receive Date: 20120305
  Receipt Date: 20120226
  Transmission Date: 20120608
  Serious: Yes (Hospitalization, Other)
  Sender: FDA-Public Use
  Company Number: 2012SP010772

PATIENT
  Age: 49 Year
  Sex: Female

DRUGS (1)
  1. DESOGESTREL AND ETHINYL ESTRADIOL [Suspect]
     Indication: CONTRACEPTION

REACTIONS (12)
  - APHASIA [None]
  - APRAXIA [None]
  - COGNITIVE DISORDER [None]
  - HYPOKINESIA [None]
  - ANHEDONIA [None]
  - BRADYPHRENIA [None]
  - EPILEPSY [None]
  - SOCIAL AVOIDANT BEHAVIOUR [None]
  - CEREBRAL VENOUS THROMBOSIS [None]
  - MEMORY IMPAIRMENT [None]
  - LOSS OF CONSCIOUSNESS [None]
  - SPEECH DISORDER [None]
